FAERS Safety Report 19933886 (Version 6)
Quarter: 2022Q1

REPORT INFORMATION
  Report Type: Spontaneous
  Country: JP (occurrence: JP)
  Receive Date: 20211008
  Receipt Date: 20220208
  Transmission Date: 20220423
  Serious: Yes (Other)
  Sender: FDA-Public Use
  Company Number: JP-DSJP-DSJ-2021-118564

PATIENT

DRUGS (11)
  1. ENHERTU [Suspect]
     Active Substance: FAM-TRASTUZUMAB DERUXTECAN-NXKI
     Indication: HER2 positive gastric cancer
     Dosage: 4.4 MG/KG, ONCE EVERY 3 WK
     Route: 041
     Dates: start: 20210621, end: 20210621
  2. ENHERTU [Suspect]
     Active Substance: FAM-TRASTUZUMAB DERUXTECAN-NXKI
     Dosage: 4.4 MG/KG, ONCE EVERY 3 WK
     Route: 041
     Dates: start: 20210712, end: 20210712
  3. ENHERTU [Suspect]
     Active Substance: FAM-TRASTUZUMAB DERUXTECAN-NXKI
     Dosage: 4.4 MG/KG, ONCE EVERY 3 WK
     Route: 041
     Dates: start: 20210816, end: 20210816
  4. ENHERTU [Suspect]
     Active Substance: FAM-TRASTUZUMAB DERUXTECAN-NXKI
     Dosage: 4.4 MG/KG, ONCE EVERY 3 WK
     Route: 041
     Dates: start: 20210913, end: 20210913
  5. LEVETIRACETAM [Concomitant]
     Active Substance: LEVETIRACETAM
     Indication: HER2 positive gastric cancer
     Dosage: 500 MG/BODY, QD
     Route: 065
     Dates: start: 20191023
  6. LEVETIRACETAM [Concomitant]
     Active Substance: LEVETIRACETAM
     Dosage: 500 MG/BODY, QD
     Route: 048
     Dates: start: 201911
  7. JANUVIA [Concomitant]
     Active Substance: SITAGLIPTIN PHOSPHATE
     Indication: HER2 positive gastric cancer
     Dosage: 50 MG/BODY, QD
     Route: 048
     Dates: start: 20210208
  8. ALFACALCIDOL [Concomitant]
     Active Substance: ALFACALCIDOL
     Dosage: UNK
     Route: 065
  9. BONALON [Concomitant]
     Active Substance: ALENDRONATE SODIUM
     Dosage: UNK
     Route: 065
  10. DEXAMETHASONE SODIUM PHOSPHATE [Suspect]
     Active Substance: DEXAMETHASONE SODIUM PHOSPHATE
     Dosage: 1.65MG 3AMPULE/DAY
     Route: 065
     Dates: start: 20210621, end: 20210913
  11. GRANISETRON [Concomitant]
     Active Substance: GRANISETRON
     Dosage: 3MG 1AMPULE/DAY
     Route: 065
     Dates: start: 20210621, end: 20210913

REACTIONS (4)
  - Ascites [Recovering/Resolving]
  - Oedema peripheral [Recovering/Resolving]
  - Hepatic steatosis [Unknown]
  - Underdose [Unknown]

NARRATIVE: CASE EVENT DATE: 20210621
